FAERS Safety Report 6180255-6 (Version None)
Quarter: 2009Q2

REPORT INFORMATION
  Report Type: 
  Country: None (occurrence: None)
  Receive Date: 20090504
  Receipt Date: 20090420
  Transmission Date: 20091009
  Serious: Yes (Hospitalization, Other)
  Sender: FDA-Public Use
  Company Number: SPV1-2009-00585

PATIENT
  Sex: Male

DRUGS (5)
  1. VYVANSE [Suspect]
     Dosage: 50 MG; 70 MG; 50 MG; 70 MG;  1X/DAY:QD, ORAL
     Route: 048
     Dates: start: 20080401, end: 20080401
  2. VYVANSE [Suspect]
     Dosage: 50 MG; 70 MG; 50 MG; 70 MG;  1X/DAY:QD, ORAL
     Route: 048
     Dates: end: 20080401
  3. VYVANSE [Suspect]
     Dosage: 50 MG; 70 MG; 50 MG; 70 MG;  1X/DAY:QD, ORAL
     Route: 048
     Dates: start: 20080401, end: 20090401
  4. VYVANSE [Suspect]
     Dosage: 50 MG; 70 MG; 50 MG; 70 MG;  1X/DAY:QD, ORAL
     Route: 048
     Dates: start: 20090401
  5. TRIAMINIC /00449901/ (GUAIFENESIN, PHENYLPROPANOLAMINE HYDROCHLORIDE) [Concomitant]

REACTIONS (1)
  - HYPOAESTHESIA ORAL [None]
